FAERS Safety Report 8024523-1 (Version None)
Quarter: 2012Q1

REPORT INFORMATION
  Report Type: 
  Country: None (occurrence: None)
  Receive Date: 20120105
  Receipt Date: 20111229
  Transmission Date: 20120608
  Serious: Yes (Hospitalization)
  Sender: FDA-Public Use
  Company Number: PHHY2011FR113487

PATIENT
  Sex: Male

DRUGS (5)
  1. ALDACTONE [Suspect]
     Route: 048
  2. GLUCOPHAGE [Suspect]
     Indication: DIABETES MELLITUS
     Route: 048
     Dates: end: 20110924
  3. VALSARTAN [Suspect]
     Dosage: 1 DF, DAILY
     Route: 048
  4. PREDNISOLONE [Concomitant]
  5. PROPRANOLOL [Concomitant]

REACTIONS (3)
  - LACTIC ACIDOSIS [None]
  - SEPTIC SHOCK [None]
  - RENAL FAILURE ACUTE [None]
